FAERS Safety Report 18442691 (Version 1)
Quarter: 2020Q4

REPORT INFORMATION
  Report Type: Spontaneous
  Country: US (occurrence: US)
  Receive Date: 20201029
  Receipt Date: 20201029
  Transmission Date: 20210114
  Serious: Yes (Hospitalization, Disabling, Other)
  Sender: FDA-Public Use
  Company Number: US-PURDUE-USA-2020-0170948

PATIENT
  Sex: Male

DRUGS (5)
  1. HYDROCODONE BITARTRATE AND ACETAMINOPHEN [Suspect]
     Active Substance: ACETAMINOPHEN\HYDROCODONE BITARTRATE
     Indication: PRODUCT USED FOR UNKNOWN INDICATION
     Dosage: UNK
     Route: 048
     Dates: start: 2008, end: 202002
  2. OXYCONTIN [Suspect]
     Active Substance: OXYCODONE HYDROCHLORIDE
     Indication: PAIN
     Dosage: UNK
     Route: 048
     Dates: start: 1995, end: 1998
  3. PERCOCET                           /00446701/ [Suspect]
     Active Substance: ACETAMINOPHEN\OXYCODONE HYDROCHLORIDE\OXYCODONE TEREPHTHALATE
     Indication: PAIN
     Dosage: UNK
     Route: 048
     Dates: start: 1995, end: 1998
  4. TRAMADOL. [Suspect]
     Active Substance: TRAMADOL
     Indication: PAIN
     Dosage: 400 MG, DAILY
     Route: 065
     Dates: start: 1998, end: 201911
  5. DARVOCET [Suspect]
     Active Substance: ACETAMINOPHEN\PROPOXYPHENE HYDROCHLORIDE
     Indication: PAIN
     Dosage: UNK
     Route: 065
     Dates: end: 2008

REACTIONS (15)
  - Headache [Not Recovered/Not Resolved]
  - Suicidal ideation [Unknown]
  - Pain [Unknown]
  - Constipation [Unknown]
  - Emotional distress [Unknown]
  - Erectile dysfunction [Not Recovered/Not Resolved]
  - Emotional poverty [Unknown]
  - Withdrawal syndrome [Not Recovered/Not Resolved]
  - Drug dependence [Unknown]
  - Restless legs syndrome [Not Recovered/Not Resolved]
  - Dry mouth [Unknown]
  - Surgery [Unknown]
  - Disability [Unknown]
  - Insomnia [Unknown]
  - Urinary tract disorder [Unknown]

NARRATIVE: CASE EVENT DATE: 1997
